FAERS Safety Report 4911226-2 (Version None)
Quarter: 2006Q1

REPORT INFORMATION
  Report Type: 
  Country: None (occurrence: None)
  Receive Date: 20060209
  Receipt Date: 20060125
  Transmission Date: 20060701
  Serious: Yes (Other)
  Sender: FDA-Public Use
  Company Number: 230045K06CAN

PATIENT
  Age: 47 Year
  Sex: Female

DRUGS (1)
  1. REBIF (INTERFERON BETA) [Suspect]
     Indication: RELAPSING-REMITTING MULTIPLE SCLEROSIS
     Dates: start: 20020909

REACTIONS (4)
  - ATROPHY [None]
  - GASTROINTESTINAL DISORDER [None]
  - INTESTINAL PERFORATION [None]
  - UTERINE CANCER [None]
